FAERS Safety Report 4725753-4 (Version None)
Quarter: 2005Q3

REPORT INFORMATION
  Report Type: 
  Country: None (occurrence: None)
  Receive Date: 20050725
  Receipt Date: 20050711
  Transmission Date: 20060218
  Serious: Yes (Hospitalization)
  Sender: FDA-Public Use
  Company Number: US142620

PATIENT
  Age: 20 Year
  Sex: Female
  Weight: 56.3 kg

DRUGS (3)
  1. ARANESP [Suspect]
     Indication: RENAL TRANSPLANT
     Dosage: 60 MCG, 1 IN 1 WEEKS
     Dates: start: 20031030
  2. SIROLIMUS [Concomitant]
  3. FERROUS SULFATE TAB [Concomitant]

REACTIONS (12)
  - CAESAREAN SECTION [None]
  - CONVULSION [None]
  - DRUG EXPOSURE DURING PREGNANCY [None]
  - FOETAL HEART RATE DECREASED [None]
  - HAEMOGLOBIN DECREASED [None]
  - HAEMORRHAGE [None]
  - HYPERTENSION [None]
  - PRE-ECLAMPSIA [None]
  - RENAL FAILURE ACUTE [None]
  - TRANSPLANT REJECTION [None]
  - TREATMENT NONCOMPLIANCE [None]
  - URINARY TRACT INFECTION [None]
